FAERS Safety Report 6624000-6 (Version None)
Quarter: 2010Q1

REPORT INFORMATION
  Report Type: 
  Country: None (occurrence: None)
  Receive Date: 20100310
  Receipt Date: 20100305
  Transmission Date: 20100710
  Serious: Yes (Hospitalization)
  Sender: FDA-Public Use
  Company Number: US-BAYER-201015715NA

PATIENT
  Sex: Female

DRUGS (7)
  1. NEXAVAR [Suspect]
     Indication: ACUTE MYELOID LEUKAEMIA
     Dosage: TOTAL DAILY DOSE: 800 MG  UNIT DOSE: 200 MG
     Route: 048
     Dates: start: 20100101
  2. ACYCLOVIR [Concomitant]
  3. POTASSIUM CHLORIDE [Concomitant]
  4. LEVAQUIN [Concomitant]
  5. NOXAFIL [Concomitant]
  6. DILAUDID [Concomitant]
  7. FLAGYL [Concomitant]

REACTIONS (1)
  - ACUTE MYELOID LEUKAEMIA [None]
